FAERS Safety Report 8120965-4 (Version None)
Quarter: 2012Q1

REPORT INFORMATION
  Report Type: 
  Country: None (occurrence: None)
  Receive Date: 20120208
  Receipt Date: 20120201
  Transmission Date: 20120608
  Serious: Yes (Hospitalization, Other)
  Sender: FDA-Public Use
  Company Number: DE-BAYER-2011-108820

PATIENT
  Age: 23 Year
  Sex: Female

DRUGS (1)
  1. YASMIN [Suspect]
     Dosage: UNK

REACTIONS (9)
  - LUNG DISORDER [None]
  - ACTIVITIES OF DAILY LIVING IMPAIRED [None]
  - GAIT DISTURBANCE [None]
  - PULMONARY EMBOLISM [None]
  - CARDIOMEGALY [None]
  - STRESS [None]
  - RESPIRATORY FAILURE [None]
  - FATIGUE [None]
  - INTRACARDIAC THROMBUS [None]
